FAERS Safety Report 5858585-4 (Version None)
Quarter: 2008Q3

REPORT INFORMATION
  Report Type: 
  Country: None (occurrence: None)
  Receive Date: 20080826
  Receipt Date: 20080815
  Transmission Date: 20090109
  Serious: Yes (Other)
  Sender: FDA-Public Use
  Company Number: US-PFIZER INC-2008068314

PATIENT
  Sex: Male
  Weight: 122.72 kg

DRUGS (9)
  1. DETROL LA [Suspect]
     Indication: HYPERTONIC BLADDER
     Route: 048
  2. LIPITOR [Concomitant]
  3. TRICOR [Concomitant]
  4. SERTRALINE [Concomitant]
  5. UROXATRAL [Concomitant]
  6. LOVAZA [Concomitant]
  7. ACETYLSALICYLIC ACID SRT [Concomitant]
  8. WARFARIN SODIUM [Concomitant]
  9. ULTRAM [Concomitant]

REACTIONS (3)
  - BLOOD PRESSURE INCREASED [None]
  - CARDIAC FLUTTER [None]
  - HEART RATE INCREASED [None]
